FAERS Safety Report 18270694 (Version 2)
Quarter: 2020Q4

REPORT INFORMATION
  Report Type: Spontaneous
  Country: US (occurrence: US)
  Receive Date: 20200915
  Receipt Date: 20201008
  Transmission Date: 20210113
  Serious: Yes (Hospitalization, Other)
  Sender: FDA-Public Use
  Company Number: US-TEVA-2020-US-1827394

PATIENT
  Age: 17 Year
  Sex: Female

DRUGS (1)
  1. PREDNISONE. [Suspect]
     Active Substance: PREDNISONE
     Indication: GUILLAIN-BARRE SYNDROME
     Dosage: 30 MILLIGRAM DAILY;
     Route: 048

REACTIONS (4)
  - Papilloedema [Recovered/Resolved]
  - Steroid withdrawal syndrome [Unknown]
  - Idiopathic intracranial hypertension [Unknown]
  - Weight increased [Unknown]
